FAERS Safety Report 13994379 (Version 1)
Quarter: 2017Q3

REPORT INFORMATION
  Report Type: Spontaneous
  Country: RU (occurrence: RU)
  Receive Date: 20170920
  Receipt Date: 20170920
  Transmission Date: 20171128
  Serious: Yes (Hospitalization)
  Sender: FDA-Public Use
  Company Number: RU-ASTRAZENECA-2017SE94901

PATIENT
  Age: 59 Year
  Sex: Female
  Weight: 65 kg

DRUGS (8)
  1. BRILINTA [Suspect]
     Active Substance: TICAGRELOR
     Indication: ANGINA UNSTABLE
     Route: 048
     Dates: start: 201703
  2. THROMBO ASS [Suspect]
     Active Substance: ASPIRIN
     Route: 065
     Dates: start: 20170316, end: 20170330
  3. THROMBO ASS [Suspect]
     Active Substance: ASPIRIN
     Route: 065
     Dates: start: 20170830, end: 20170906
  4. CORDARON [Concomitant]
     Active Substance: AMIODARONE HYDROCHLORIDE
  5. ATORVASTATIN [Concomitant]
     Active Substance: ATORVASTATIN
  6. TRIMETAZIDINE [Concomitant]
     Active Substance: TRIMETAZIDINE
  7. BRILINTA [Suspect]
     Active Substance: TICAGRELOR
     Indication: STENT PLACEMENT
     Route: 048
     Dates: start: 201703
  8. VALS [Concomitant]

REACTIONS (3)
  - Blood pressure increased [Recovered/Resolved]
  - Product use issue [Unknown]
  - Off label use [Unknown]

NARRATIVE: CASE EVENT DATE: 20170313
